FAERS Safety Report 24155897 (Version 1)
Quarter: 2024Q3

REPORT INFORMATION
  Report Type: Spontaneous
  Country: KR (occurrence: KR)
  Receive Date: 20240731
  Receipt Date: 20240731
  Transmission Date: 20241016
  Serious: Yes (Other)
  Sender: SANOFI AVENTIS
  Company Number: KR-SANOFI-02146416

PATIENT
  Age: 70 Year
  Sex: Male

DRUGS (3)
  1. PLAVIX [Suspect]
     Active Substance: CLOPIDOGREL BISULFATE
     Indication: Product used for unknown indication
     Dosage: UNK
  2. EDOXABAN TOSYLATE [Suspect]
     Active Substance: EDOXABAN TOSYLATE
     Dosage: UNK
  3. TAMBOCOR [Suspect]
     Active Substance: FLECAINIDE ACETATE
     Dosage: UNK

REACTIONS (4)
  - Arrhythmia [Unknown]
  - Cerebral infarction [Unknown]
  - Dizziness [Unknown]
  - Product use issue [Unknown]
